FAERS Safety Report 7605436-3 (Version None)
Quarter: 2011Q3

REPORT INFORMATION
  Report Type: 
  Country: None (occurrence: None)
  Receive Date: 20110712
  Receipt Date: 20110712
  Transmission Date: 20111222
  Serious: Yes (Hospitalization)
  Sender: FDA-Public Use
  Company Number: None

PATIENT
  Age: 38 Year
  Sex: Male
  Weight: 90.7 kg

DRUGS (2)
  1. OXYCODONE HCL [Suspect]
     Indication: BACK PAIN
     Dosage: 10 MG PRN PO
     Route: 048
     Dates: start: 20101216, end: 20110314
  2. FENTANYL-100 [Suspect]
     Indication: BACK PAIN
     Dosage: 50 MCG OTHER TOP
     Route: 061
     Dates: start: 20110202, end: 20110315

REACTIONS (7)
  - CHILLS [None]
  - NIGHT SWEATS [None]
  - PYREXIA [None]
  - MALAISE [None]
  - ILEUS [None]
  - ANXIETY [None]
  - HEADACHE [None]
